FAERS Safety Report 8079999-0 (Version None)
Quarter: 2012Q1

REPORT INFORMATION
  Report Type: 
  Country: None (occurrence: None)
  Receive Date: 20120128
  Receipt Date: 20110804
  Transmission Date: 20120608
  Serious: Yes (Hospitalization)
  Sender: FDA-Public Use
  Company Number: US-ABBOTT-11P-163-0843754-00

PATIENT
  Sex: Female
  Weight: 62.198 kg

DRUGS (6)
  1. ZOLPIDEM TARTATE [Concomitant]
     Indication: INSOMNIA
     Dosage: AT BEDTIME
  2. ASACOL [Concomitant]
     Indication: CROHN'S DISEASE
  3. CALCIUM CARBONATE [Concomitant]
     Indication: BLOOD CALCIUM DECREASED
  4. NEXIUM [Concomitant]
     Indication: GASTROOESOPHAGEAL REFLUX DISEASE
  5. PREDNISONE TAB [Concomitant]
     Indication: CROHN'S DISEASE
     Dates: start: 19700101
  6. HUMIRA [Suspect]
     Indication: CROHN'S DISEASE
     Route: 058
     Dates: start: 20110520

REACTIONS (5)
  - NASOPHARYNGITIS [None]
  - THROAT IRRITATION [None]
  - FALL [None]
  - SPINAL COMPRESSION FRACTURE [None]
  - OSTEOPOROSIS [None]
